FAERS Safety Report 5484683-3 (Version None)
Quarter: 2007Q4

REPORT INFORMATION
  Report Type: 
  Country: None (occurrence: None)
  Receive Date: 20071012
  Receipt Date: 20071001
  Transmission Date: 20080405
  Serious: Yes (Other)
  Sender: FDA-Public Use
  Company Number: US-PFIZER INC-2007082932

PATIENT
  Sex: Female
  Weight: 68.2 kg

DRUGS (6)
  1. CHANTIX [Suspect]
     Indication: SMOKING CESSATION THERAPY
     Route: 048
  2. VERAPAMIL [Concomitant]
  3. ZIAC [Concomitant]
  4. CLONAZEPAM [Concomitant]
  5. PRAVACHOL [Concomitant]
  6. CALCIUM [Concomitant]

REACTIONS (2)
  - DIZZINESS [None]
  - FALL [None]
